FAERS Safety Report 16699119 (Version 1)
Quarter: 2019Q3

REPORT INFORMATION
  Report Type: Spontaneous
  Country: US (occurrence: US)
  Receive Date: 20190813
  Receipt Date: 20190813
  Transmission Date: 20191004
  Serious: Yes (Other)
  Sender: FDA-Public Use
  Company Number: PHHY2019US184070

PATIENT
  Age: 14 Year
  Sex: Female

DRUGS (2)
  1. ENOXAPARIN [Suspect]
     Active Substance: ENOXAPARIN
     Indication: ISCHAEMIA
     Dosage: UNK, BEFORE LEFT-SIDED PIAL SYNANGIOSIS
     Route: 065
  2. ENOXAPARIN [Suspect]
     Active Substance: ENOXAPARIN
     Dosage: UNK, 2 WEEKS POSTOPERATIVELY
     Route: 065

REACTIONS (1)
  - Subdural haematoma [Recovered/Resolved]
